FAERS Safety Report 7042381-9 (Version None)
Quarter: 2010Q4

REPORT INFORMATION
  Report Type: 
  Country: None (occurrence: None)
  Receive Date: 20101013
  Receipt Date: 20091210
  Transmission Date: 20110411
  Serious: No
  Sender: FDA-Public Use
  Company Number: US-ASTRAZENECA-2009SE32131

PATIENT
  Sex: Male

DRUGS (3)
  1. SYMBICORT [Suspect]
     Route: 055
  2. SYMBICORT [Suspect]
     Dosage: 160/80 2 PUFFS BID
     Route: 055
     Dates: start: 20091209
  3. AVELOX [Concomitant]

REACTIONS (1)
  - LIP SWELLING [None]
